FAERS Safety Report 8617837-5 (Version None)
Quarter: 2012Q3

REPORT INFORMATION
  Report Type: 
  Country: None (occurrence: None)
  Receive Date: 20120824
  Receipt Date: 20120316
  Transmission Date: 20120928
  Serious: No
  Sender: FDA-Public Use
  Company Number: US-ASTRAZENECA-2012SE11526

PATIENT
  Age: 75 Year
  Sex: Female
  Weight: 56.2 kg

DRUGS (1)
  1. SYMBICORT [Suspect]
     Dosage: 160/4.5 MICROGRAMS, 2 PUFFS TWICE DAILY
     Route: 055
     Dates: start: 20120110

REACTIONS (3)
  - CHRONIC OBSTRUCTIVE PULMONARY DISEASE [None]
  - DRUG DOSE OMISSION [None]
  - LUNG DISORDER [None]
